FAERS Safety Report 5508891-8 (Version None)
Quarter: 2007Q4

REPORT INFORMATION
  Report Type: 
  Country: None (occurrence: None)
  Receive Date: 20071107
  Receipt Date: 20071030
  Transmission Date: 20080405
  Serious: Yes (Disabling)
  Sender: FDA-Public Use
  Company Number: PHBS2007MX18206

PATIENT
  Age: 79 Year
  Sex: Female

DRUGS (2)
  1. RECLAST [Suspect]
     Indication: OSTEOPOROSIS
     Dosage: 5 MG/100 ML
     Route: 042
     Dates: start: 20070717
  2. ANTIHYPERTENSIVES [Concomitant]
     Indication: HYPERTENSION

REACTIONS (1)
  - HIP FRACTURE [None]
